FAERS Safety Report 20045951 (Version 1)
Quarter: 2021Q4

REPORT INFORMATION
  Report Type: Spontaneous
  Country: US (occurrence: None)
  Receive Date: 20211108
  Receipt Date: 20211108
  Transmission Date: 20220303
  Serious: Yes (Other)
  Sender: FDA-Public Use
  Company Number: None

PATIENT
  Age: 26 Year
  Sex: Male
  Weight: 62.55 kg

DRUGS (4)
  1. VALPROIC ACID [Suspect]
     Active Substance: VALPROIC ACID
     Indication: Mood swings
     Dosage: FREQUENCY : TWICE A DAY;?
     Route: 048
     Dates: start: 20211105, end: 20211107
  2. VALPROIC ACID [Suspect]
     Active Substance: VALPROIC ACID
     Indication: Seizure
  3. VIMPAT [Suspect]
     Active Substance: LACOSAMIDE
  4. CLOBAZAM [Suspect]
     Active Substance: CLOBAZAM

REACTIONS (4)
  - Unresponsive to stimuli [None]
  - Poverty of speech [None]
  - Feeding disorder [None]
  - Gait disturbance [None]

NARRATIVE: CASE EVENT DATE: 20211106
